FAERS Safety Report 8971560 (Version 1)
Quarter: 2012Q4

REPORT INFORMATION
  Report Type: 
  Country: FR (occurrence: FR)
  Receive Date: 20121211
  Receipt Date: 20121211
  Transmission Date: 20130627
  Serious: Yes (Hospitalization)
  Sender: FDA-Public Use
  Company Number: FR-PFIZER INC-2012304249

PATIENT
  Age: 87 Year
  Sex: Male

DRUGS (13)
  1. ALDACTONE [Suspect]
     Indication: HYPERTENSION ARTERIAL
     Dosage: 1 DF, alternate day
     Route: 048
     Dates: start: 20121001, end: 20121031
  2. LASILIX [Interacting]
     Indication: HYPERTENSION ARTERIAL
     Dosage: 60 mg, 1x/day
     Route: 048
     Dates: start: 20121001, end: 20121030
  3. ODRIK [Interacting]
     Indication: HYPERTENSION ARTERIAL
     Dosage: 4 mg, 1x/day
     Route: 048
     Dates: end: 20121030
  4. PLAVIX [Concomitant]
     Dosage: 75 mg, 1x/day
     Route: 048
  5. CORDARONE [Concomitant]
     Dosage: 1 DF, 1x/day
     Route: 048
  6. MOLSIDOMINE [Concomitant]
     Dosage: 4 mg, 1x/day
     Route: 048
  7. CRESTOR [Concomitant]
     Dosage: 10 mg, 1x/day
     Route: 048
  8. XATRAL - SLOW RELEASE [Concomitant]
     Dosage: 10 mg, 1x/day
     Route: 048
  9. PERMIXON [Concomitant]
     Dosage: 1 DF, 1x/day
     Route: 048
  10. SYMBICORT TURBOHALER [Concomitant]
     Dosage: 2 DF, 2x/day
     Route: 055
  11. IXPRIM [Concomitant]
     Dosage: 1 DF, 3x/day
     Route: 048
  12. OMEPRAZOLE [Concomitant]
     Dosage: 20 mg, 1x/day
     Route: 048
  13. NATISPRAY [Concomitant]
     Dosage: UNK
     Route: 055

REACTIONS (3)
  - Renal failure acute [Recovered/Resolved]
  - Hyperkalaemia [Recovered/Resolved]
  - Drug interaction [Recovered/Resolved]
